FAERS Safety Report 9058842 (Version 2)
Quarter: 2013Q1

REPORT INFORMATION
  Report Type: Spontaneous
  Country: JP (occurrence: JP)
  Receive Date: 20130130
  Receipt Date: 20130130
  Transmission Date: 20140127
  Serious: Yes (Hospitalization)
  Sender: FDA-Public Use
  Company Number: JP-ROCHE-1180391

PATIENT
  Age: 68 None
  Sex: Female
  Weight: 55 kg

DRUGS (1)
  1. ROCEPHIN [Suspect]
     Indication: ENTERITIS INFECTIOUS
     Route: 041
     Dates: start: 20130106, end: 20130109

REACTIONS (1)
  - Chondrocalcinosis pyrophosphate [Recovered/Resolved]
